FAERS Safety Report 8233845-0 (Version None)
Quarter: 2012Q1

REPORT INFORMATION
  Report Type: 
  Country: None (occurrence: None)
  Receive Date: 20120326
  Receipt Date: 20120315
  Transmission Date: 20120608
  Serious: Yes (Hospitalization)
  Sender: FDA-Public Use
  Company Number: US-SANOFI-AVENTIS-2012SA018624

PATIENT
  Sex: Male
  Weight: 65.8 kg

DRUGS (8)
  1. ALL OTHER THERAPEUTIC PRODUCTS [Concomitant]
  2. LEXAPRO [Concomitant]
  3. PLAVIX [Suspect]
     Route: 048
     Dates: start: 20090328, end: 20120302
  4. LISINOPRIL [Concomitant]
  5. ASPIRIN [Concomitant]
  6. TRILEPTAL [Concomitant]
  7. ATENOLOL [Concomitant]
  8. ASPIRIN [Concomitant]

REACTIONS (4)
  - BIPOLAR DISORDER [None]
  - ABNORMAL BEHAVIOUR [None]
  - DEPRESSION [None]
  - AMNESIA [None]
